FAERS Safety Report 6329317-0 (Version None)
Quarter: 2009Q3

REPORT INFORMATION
  Report Type: 
  Country: None (occurrence: None)
  Receive Date: 20090824
  Receipt Date: 20090824
  Transmission Date: 20100115
  Serious: Yes (Other)
  Sender: FDA-Public Use
  Company Number: None

PATIENT
  Sex: Female

DRUGS (5)
  1. DEXTROAMPHETAMINE AND AMPHETAMINE SALTS [Suspect]
     Dosage: 45 MG EVERY AM PO
     Route: 048
     Dates: start: 20081026, end: 20090810
  2. BUPROPION HCL [Concomitant]
  3. FLUOXETINE [Concomitant]
  4. TRINESSA [Concomitant]
  5. MIDRIN [Concomitant]

REACTIONS (2)
  - HEART RATE INCREASED [None]
  - PRODUCT QUALITY ISSUE [None]
